FAERS Safety Report 14326572 (Version 1)
Quarter: 2017Q4

REPORT INFORMATION
  Report Type: Other
  Country: FR (occurrence: FR)
  Receive Date: 20171227
  Receipt Date: 20171227
  Transmission Date: 20180321
  Serious: Yes (Life-Threatening, Other)
  Sender: FDA-Public Use
  Company Number: FR-MACLEODS PHARMACEUTICALS US LTD-MAC2017007501

PATIENT

DRUGS (11)
  1. LOXAPAC 25 MG COATED TABLET [Suspect]
     Active Substance: LOXAPINE
     Indication: SCHIZOPHRENIA
     Dosage: 6 DF, QD
     Route: 048
     Dates: start: 20140103, end: 20140724
  2. ALPRAZOLAM. [Suspect]
     Active Substance: ALPRAZOLAM
     Indication: PRODUCT USED FOR UNKNOWN INDICATION
     Dosage: 0.75 MG, QD
     Route: 048
     Dates: start: 20170206
  3. CLOZAPINE. [Suspect]
     Active Substance: CLOZAPINE
     Indication: SCHIZOPHRENIA
     Dosage: VARIABLE DOSAGE
     Route: 048
     Dates: start: 20100731
  4. TRANXENE 10 MG CAPSULE [Suspect]
     Active Substance: CLORAZEPATE DIPOTASSIUM
     Indication: SCHIZOPHRENIA
     Dosage: 1 DF, QD
     Route: 048
     Dates: start: 20130904, end: 20140724
  5. PARKINANE L 5 MG PROLONGED-RELEASE CAPSULE [Suspect]
     Active Substance: TRIHEXYPHENIDYL HYDROCHLORIDE
     Indication: DYSKINESIA
     Dosage: 1 DF, QD (PROLONGED-RELEASE CAPSULE)
     Route: 048
     Dates: start: 20130903, end: 20140724
  6. ARIPIPRAZOLE  5 MG [Suspect]
     Active Substance: ARIPIPRAZOLE
     Indication: SCHIZOPHRENIA
     Dosage: 5 MG, QD
     Route: 048
     Dates: start: 20170722
  7. DEPAMIDE 300 MG GASTRO-RESISTANT FILM-COATED TABLET [Suspect]
     Active Substance: VALPROMIDE
     Indication: SCHIZOPHRENIA
     Dosage: 3 DF, QD (GASTRO-RESISTANT FILM-COATED TABLET)
     Route: 048
     Dates: start: 20140125
  8. HAVLANE TABLET BREACKABLE [Suspect]
     Active Substance: LOPRAZOLAM MESILATE
     Indication: PRODUCT USED FOR UNKNOWN INDICATION
     Dosage: 1 DF, QD
     Route: 048
     Dates: start: 20130903
  9. PIPORTIL (PIPOTIAZINE) [Suspect]
     Active Substance: PIPOTIAZINE
     Indication: SCHIZOPHRENIA
     Dosage: 3 DF, QD (DIVISIBLE COATED TABLET)
     Route: 048
     Dates: start: 20100731
  10. VALIUM [Suspect]
     Active Substance: DIAZEPAM
     Indication: PRODUCT USED FOR UNKNOWN INDICATION
     Dosage: 4 DF, QD (TABLET BREACKABLE)
     Route: 048
     Dates: start: 20131231, end: 20140103
  11. LEPTICUR 10 MG TABLET [Suspect]
     Active Substance: TROPATEPINE HYDROCHLORIDE
     Indication: DYSKINESIA
     Dosage: 1 DF, QD
     Route: 048
     Dates: start: 20170208

REACTIONS (1)
  - Non-Hodgkin^s lymphoma [Not Recovered/Not Resolved]

NARRATIVE: CASE EVENT DATE: 20170619
